FAERS Safety Report 8381841-5 (Version None)
Quarter: 2012Q2

REPORT INFORMATION
  Report Type: 
  Country: None (occurrence: None)
  Receive Date: 20120523
  Receipt Date: 20120523
  Transmission Date: 20120825
  Serious: Yes (Hospitalization)
  Sender: FDA-Public Use
  Company Number: None

PATIENT
  Sex: Male
  Weight: 85.503 kg

DRUGS (11)
  1. CLONAZEPAM 1MG QAM, 2MG QHS [Concomitant]
  2. ZILEUTON 600MG BID [Concomitant]
  3. LEVOTHYROXINE 137MCG QD [Concomitant]
  4. LURASIDONE [Suspect]
     Indication: SCHIZOAFFECTIVE DISORDER
     Dosage: 80MG PO QHS
     Route: 048
     Dates: start: 20120403
  5. FLUTICASONE AND SALMETEROL 500MG BID [Concomitant]
  6. QUETIAPINE 600MG [Concomitant]
  7. ALBUTEROL 2 PUFFS PRN [Concomitant]
  8. PSYLLIUM 2 CAPSULES QID [Concomitant]
  9. THEOPHYLLINE 200MG BID [Concomitant]
  10. BECLOMETHASONE 2 PUFFS BID [Concomitant]
  11. MONTELUKAST 10MG QHS [Concomitant]

REACTIONS (2)
  - INCORRECT DOSE ADMINISTERED [None]
  - HOMICIDAL IDEATION [None]
